FAERS Safety Report 16067729 (Version 1)
Quarter: 2019Q2

REPORT INFORMATION
  Report Type: Spontaneous
  Country: US (occurrence: US)
  Receive Date: 20190313
  Receipt Date: 20190313
  Transmission Date: 20190711
  Serious: Yes (Hospitalization)
  Sender: FDA-Public Use
  Company Number: None

PATIENT
  Age: 30 Year
  Sex: Female
  Weight: 75 kg

DRUGS (3)
  1. LASIX [Concomitant]
     Active Substance: FUROSEMIDE
  2. PROTONIX (7 DAYS) [Concomitant]
  3. CEFTAROLINE (UNKNOWN STRENGTH) [Suspect]
     Active Substance: CEFTAROLINE
     Indication: STAPHYLOCOCCAL INFECTION
     Dates: start: 20190203, end: 20190222

REACTIONS (2)
  - Septic embolus [None]
  - Rash [None]

NARRATIVE: CASE EVENT DATE: 20190222
